FAERS Safety Report 7229768-6 (Version None)
Quarter: 2011Q1

REPORT INFORMATION
  Report Type: 
  Country: None (occurrence: None)
  Receive Date: 20110117
  Receipt Date: 20110113
  Transmission Date: 20110831
  Serious: Yes (Death, Life-Threatening)
  Sender: FDA-Public Use
  Company Number: PL-PFIZER INC-2006029251

PATIENT
  Age: 53 Year
  Sex: Male
  Weight: 58 kg

DRUGS (8)
  1. LOPERAMIDE [Concomitant]
     Route: 048
     Dates: start: 20060130, end: 20060224
  2. TIALORID [Concomitant]
     Route: 048
     Dates: start: 20060120, end: 20060224
  3. SUNITINIB MALATE [Suspect]
     Indication: GASTROINTESTINAL STROMAL TUMOUR
     Dosage: 50 MG, 1X/DAY
     Route: 048
     Dates: start: 20060116, end: 20060213
  4. NO-SPA [Concomitant]
     Route: 048
     Dates: start: 20060120, end: 20060224
  5. GASEC [Concomitant]
     Route: 048
     Dates: start: 20060120, end: 20060224
  6. KETONAL [Concomitant]
     Route: 048
     Dates: start: 20060120, end: 20060224
  7. KETOCONAZOLE [Concomitant]
     Route: 048
     Dates: start: 20060213, end: 20060219
  8. MORPHINE [Concomitant]
     Indication: ANTIDIARRHOEAL SUPPORTIVE CARE
     Route: 048
     Dates: start: 20060223, end: 20060225

REACTIONS (2)
  - DIARRHOEA [None]
  - PERFORMANCE STATUS DECREASED [None]
